FAERS Safety Report 22146168 (Version 1)
Quarter: 2023Q1

REPORT INFORMATION
  Report Type: Spontaneous
  Country: US (occurrence: None)
  Receive Date: 20230327
  Receipt Date: 20230327
  Transmission Date: 20230418
  Serious: No
  Sender: FDA-Public Use
  Company Number: None

PATIENT
  Age: 44 Year
  Sex: Female
  Weight: 65.25 kg

DRUGS (7)
  1. ORILISSA [Suspect]
     Active Substance: ELAGOLIX SODIUM
     Indication: Endometriosis
     Dosage: FREQUENCY : DAILY;?
     Route: 048
     Dates: start: 20221209, end: 20230327
  2. EMGALIY [Concomitant]
  3. RELPAX [Concomitant]
     Active Substance: ELETRIPTAN HYDROBROMIDE
  4. UBRELVY [Concomitant]
     Active Substance: UBROGEPANT
  5. KETOROLAC TABS [Concomitant]
  6. SINGULAIR [Concomitant]
     Active Substance: MONTELUKAST SODIUM
  7. MINERA [Concomitant]

REACTIONS (3)
  - Hot flush [None]
  - Night sweats [None]
  - Mood altered [None]

NARRATIVE: CASE EVENT DATE: 20230327
